FAERS Safety Report 5442631-6 (Version None)
Quarter: 2007Q3

REPORT INFORMATION
  Report Type: 
  Country: None (occurrence: None)
  Receive Date: 20070830
  Receipt Date: 20070815
  Transmission Date: 20080115
  Serious: Yes (Other)
  Sender: FDA-Public Use
  Company Number: 2007RR-09392

PATIENT
  Age: 73 Year
  Sex: Male

DRUGS (16)
  1. NITROFURANTOIN [Suspect]
     Dosage: 50 MG, QD
  2. FLUCONAZOLE [Suspect]
     Indication: ONYCHOMYCOSIS
     Dosage: 150 MG, 1/WEEK
  3. TERAZOSIN HYDROCHLORIDE (TERAZOSIN) [Concomitant]
  4. CIMETIDINE RPG (CIMETIDINE) [Concomitant]
  5. FLUTICASONE PROPIONATE [Concomitant]
  6. DIPHENHYDRAMINE HCL [Concomitant]
  7. IBUPROFEN [Concomitant]
  8. FLUOCINONIDE [Concomitant]
  9. CENTRUM (CENTRUM) [Concomitant]
  10. VITAMIN E [Concomitant]
  11. CALCIUM CITRATE/VITAMIN D (CALCIUM CITRATE/VITAMIN D) [Concomitant]
  12. ASPIRIN [Concomitant]
  13. CALCIUM POLYCARBOPHIL (CALCIUM POLYCARBOPHIL) [Concomitant]
  14. DOCUSATE SODIUM (DOCUSATE SODIUM) [Concomitant]
  15. RANITIDINE [Concomitant]
  16. LEVOFLOXACIN [Concomitant]

REACTIONS (4)
  - HEPATOTOXICITY [None]
  - PULMONARY FIBROSIS [None]
  - PULMONARY OEDEMA [None]
  - PULMONARY TOXICITY [None]
